FAERS Safety Report 5112733-2 (Version None)
Quarter: 2006Q3

REPORT INFORMATION
  Report Type: 
  Country: None (occurrence: None)
  Receive Date: 20060922
  Receipt Date: 20060913
  Transmission Date: 20061208
  Serious: Yes (Hospitalization)
  Sender: FDA-Public Use
  Company Number: AU-GLAXOSMITHKLINE-Z0000188A

PATIENT
  Age: 38 Year
  Sex: Female
  Weight: 78.9 kg

DRUGS (1)
  1. ROPINIROLE [Suspect]
     Indication: RESTLESS LEGS SYNDROME
     Route: 048
     Dates: start: 20060907

REACTIONS (2)
  - INTENTIONAL OVERDOSE [None]
  - OVERDOSE [None]
